FAERS Safety Report 25345821 (Version 1)
Quarter: 2025Q2

REPORT INFORMATION
  Report Type: Other
  Country: JP (occurrence: JP)
  Receive Date: 20250522
  Receipt Date: 20250522
  Transmission Date: 20250717
  Serious: Yes (Hospitalization, Other)
  Sender: ESJAY PHARMA
  Company Number: JP-ESJAY PHARMA-000628

PATIENT
  Sex: Female
  Weight: 51 kg

DRUGS (6)
  1. FUROSEMIDE [Suspect]
     Active Substance: FUROSEMIDE
     Indication: Device related infection
  2. VANCOMYCIN [Concomitant]
     Active Substance: VANCOMYCIN
     Indication: Device related infection
  3. NOREPINEPHRINE [Concomitant]
     Active Substance: NOREPINEPHRINE
     Indication: Device related infection
  4. FUROSEMIDE [Suspect]
     Active Substance: FUROSEMIDE
     Indication: Staphylococcal sepsis
  5. VANCOMYCIN [Concomitant]
     Active Substance: VANCOMYCIN
     Indication: Staphylococcal sepsis
  6. NOREPINEPHRINE [Concomitant]
     Active Substance: NOREPINEPHRINE
     Indication: Staphylococcal sepsis

REACTIONS (2)
  - Nephropathy toxic [Unknown]
  - Acute kidney injury [Unknown]
